FAERS Safety Report 9287208 (Version 4)
Quarter: 2014Q3

REPORT INFORMATION
  Report Type: Spontaneous
  Country: US (occurrence: US)
  Receive Date: 20130513
  Receipt Date: 20140718
  Transmission Date: 20150326
  Serious: No
  Sender: FDA-Public Use
  Company Number: US-009507513-1305USA006180

PATIENT
  Sex: Male
  Weight: 94.79 kg

DRUGS (3)
  1. PROPECIA [Suspect]
     Active Substance: FINASTERIDE
     Indication: ALOPECIA
     Dosage: 1 MG, UNK
     Route: 048
     Dates: start: 20100415, end: 201011
  2. NORVASC [Concomitant]
     Active Substance: AMLODIPINE BESYLATE
     Indication: HYPERTENSION
     Dosage: UNK
     Dates: start: 2007
  3. METOPROLOL [Concomitant]
     Active Substance: METOPROLOL
     Indication: HYPERTENSION
     Dosage: UNK
     Dates: start: 2007

REACTIONS (16)
  - Flank pain [Unknown]
  - Back disorder [Unknown]
  - Elbow operation [Unknown]
  - Testicular pain [Unknown]
  - Asthenia [Not Recovered/Not Resolved]
  - Hypogonadism [Not Recovered/Not Resolved]
  - Organic erectile dysfunction [Not Recovered/Not Resolved]
  - Androgen deficiency [Unknown]
  - HLA marker study positive [Unknown]
  - Keratomileusis [Unknown]
  - Hyperlipidaemia [Unknown]
  - Libido decreased [Not Recovered/Not Resolved]
  - Vision blurred [Unknown]
  - Erectile dysfunction [Not Recovered/Not Resolved]
  - Libido decreased [Not Recovered/Not Resolved]
  - Sexual dysfunction [Not Recovered/Not Resolved]

NARRATIVE: CASE EVENT DATE: 2011
